FAERS Safety Report 23151015 (Version 11)
Quarter: 2025Q4

REPORT INFORMATION
  Report Type: Report from Study
  Country: IN (occurrence: IN)
  Receive Date: 20231106
  Receipt Date: 20251230
  Transmission Date: 20260117
  Serious: Yes (Other)
  Sender: INCYTE
  Company Number: IN-002147023-NVSC2022IN186296

PATIENT
  Age: 64 Year

DRUGS (15)
  1. RUXOLITINIB [Suspect]
     Active Substance: RUXOLITINIB
     Indication: Polycythaemia vera
     Dosage: 10 MG, BID
     Route: 061
  2. RUXOLITINIB [Suspect]
     Active Substance: RUXOLITINIB
     Indication: Myelofibrosis
     Dosage: 5 MG, BID
     Route: 061
  3. RUXOLITINIB [Suspect]
     Active Substance: RUXOLITINIB
     Dosage: 10 MG, BID
     Route: 061
  4. RUXOLITINIB [Suspect]
     Active Substance: RUXOLITINIB
     Dosage: 10 MG, BID
     Route: 061
  5. RUXOLITINIB [Suspect]
     Active Substance: RUXOLITINIB
     Dosage: 10 MG, BID
     Route: 061
  6. RUXOLITINIB [Suspect]
     Active Substance: RUXOLITINIB
     Dosage: 10 MG, BID
     Route: 061
  7. RUXOLITINIB [Suspect]
     Active Substance: RUXOLITINIB
     Dosage: 10 MG, BID (TWICE A DAY)
     Route: 061
  8. RUXOLITINIB [Suspect]
     Active Substance: RUXOLITINIB
     Dosage: 5 MG, BID
     Route: 061
  9. RUXOLITINIB [Suspect]
     Active Substance: RUXOLITINIB
     Dosage: 10 MG, QD
     Route: 061
  10. RUXOLITINIB [Suspect]
     Active Substance: RUXOLITINIB
     Dosage: 10 MG, BID
     Route: 061
  11. HYDROXYUREA [Concomitant]
     Active Substance: HYDROXYUREA
     Indication: Myeloproliferative neoplasm
     Dosage: 500 MG, QD
     Route: 065
  12. HYDROXYUREA [Concomitant]
     Active Substance: HYDROXYUREA
     Dosage: 500MG/1GM ALTERNATE DAY
     Route: 065
  13. HYDREA [Concomitant]
     Active Substance: HYDROXYUREA
     Indication: Myeloproliferative neoplasm
     Dosage: 500 MG
     Route: 065
  14. FOLVITE [Concomitant]
     Active Substance: FOLIC ACID
     Indication: Product used for unknown indication
     Dosage: UNK
     Route: 065
  15. ASPIRIN [Concomitant]
     Active Substance: ASPIRIN
     Indication: Product used for unknown indication
     Dosage: UNK
     Route: 065

REACTIONS (28)
  - Angina pectoris [Unknown]
  - Type 2 diabetes mellitus [Unknown]
  - Pruritus [Unknown]
  - Hepatomegaly [Unknown]
  - Hepatic pain [Unknown]
  - Abdominal pain upper [Unknown]
  - Sleep disorder [Unknown]
  - Paronychia [Unknown]
  - Eczema [Unknown]
  - Splenomegaly [Unknown]
  - Leukocytosis [Unknown]
  - Hypertension [Unknown]
  - Product availability issue [Unknown]
  - Oedema [Unknown]
  - Jaundice [Unknown]
  - Lymphadenopathy [Unknown]
  - Drug intolerance [Unknown]
  - Asthma [Unknown]
  - White blood cell count abnormal [Unknown]
  - Blood glucose abnormal [Unknown]
  - Haemoglobin abnormal [Unknown]
  - Lipids abnormal [Unknown]
  - Laboratory test abnormal [Unknown]
  - Platelet count abnormal [Unknown]
  - Blood albumin abnormal [Unknown]
  - Product use issue [Unknown]
  - General physical health deterioration [Unknown]
  - Neutrophil count abnormal [Unknown]
